FAERS Safety Report 10581105 (Version 1)
Quarter: 2014Q4

REPORT INFORMATION
  Report Type: Spontaneous
  Country: CA (occurrence: None)
  Receive Date: 20141112
  Receipt Date: 20141112
  Transmission Date: 20150529
  Serious: No
  Sender: FDA-Public Use
  Company Number: None

PATIENT
  Age: 53 Year
  Sex: Female
  Weight: 90.72 kg

DRUGS (1)
  1. ABILIFY [Suspect]
     Active Substance: ARIPIPRAZOLE
     Indication: BIPOLAR DISORDER
     Dosage: 2 PILLS AT BEDTIME
     Route: 048
     Dates: start: 20141103, end: 20141111

REACTIONS (2)
  - Anger [None]
  - Irritability [None]

NARRATIVE: CASE EVENT DATE: 20141111
